FAERS Safety Report 12703025 (Version 2)
Quarter: 2016Q4

REPORT INFORMATION
  Report Type: Spontaneous
  Country: IE (occurrence: IE)
  Receive Date: 20160831
  Receipt Date: 20161014
  Transmission Date: 20170207
  Serious: Yes (Death)
  Sender: FDA-Public Use
  Company Number: IE-PFIZER INC-2016410330

PATIENT
  Age: 76 Year
  Sex: Male

DRUGS (2)
  1. ZOMETA [Concomitant]
     Active Substance: ZOLEDRONIC ACID
     Dosage: UNK
  2. SUTENT [Suspect]
     Active Substance: SUNITINIB MALATE
     Indication: FOLLICULAR THYROID CANCER
     Dosage: 50 MG, ON 4/2 SCHEDULE
     Dates: start: 20130101, end: 20130123

REACTIONS (3)
  - Hypertension [Unknown]
  - Product use issue [Unknown]
  - Death [Fatal]
